FAERS Safety Report 10985115 (Version 1)
Quarter: 2015Q2

REPORT INFORMATION
  Report Type: Spontaneous
  Country: US (occurrence: None)
  Receive Date: 20150403
  Receipt Date: 20150403
  Transmission Date: 20150821
  Serious: Yes (Other)
  Sender: FDA-Public Use
  Company Number: None

PATIENT
  Age: 9 Year
  Sex: Male
  Weight: 34.47 kg

DRUGS (2)
  1. FOCLAIN XR (GENERIC) 10MG [Suspect]
     Active Substance: DEXMETHYLPHENIDATE HYDROCHLORIDE
     Indication: ATTENTION DEFICIT/HYPERACTIVITY DISORDER
     Dosage: ONE TAB DAILY QD ORAL
     Route: 048
     Dates: start: 20150211, end: 20150401
  2. FOCLAIN XR (GENERIC) 10MG [Suspect]
     Active Substance: DEXMETHYLPHENIDATE HYDROCHLORIDE
     Indication: ABNORMAL BEHAVIOUR
     Dosage: ONE TAB DAILY QD ORAL
     Route: 048
     Dates: start: 20150211, end: 20150401

REACTIONS (8)
  - Depressed mood [None]
  - Abnormal behaviour [None]
  - Affective disorder [None]
  - Product substitution issue [None]
  - Emotional disorder [None]
  - Educational problem [None]
  - Anger [None]
  - Crying [None]

NARRATIVE: CASE EVENT DATE: 20150221
